FAERS Safety Report 5983559-2 (Version None)
Quarter: 2008Q4

REPORT INFORMATION
  Report Type: 
  Country: None (occurrence: None)
  Receive Date: 20081208
  Receipt Date: 20080306
  Transmission Date: 20090506
  Serious: No
  Sender: FDA-Public Use
  Company Number: US-AMGEN-KDL268465

PATIENT
  Sex: Male

DRUGS (1)
  1. ENBREL [Suspect]
     Indication: RHEUMATOID ARTHRITIS
     Route: 058
     Dates: start: 20070701

REACTIONS (6)
  - FALL [None]
  - RHEUMATOID ARTHRITIS [None]
  - TENDON RUPTURE [None]
  - THERAPEUTIC RESPONSE DECREASED [None]
  - TOOTH FRACTURE [None]
  - TOOTHACHE [None]
